FAERS Safety Report 23548106 (Version 3)
Quarter: 2024Q2

REPORT INFORMATION
  Report Type: Spontaneous
  Country: US (occurrence: US)
  Receive Date: 20240221
  Receipt Date: 20240402
  Transmission Date: 20240715
  Serious: No
  Sender: FDA-Public Use
  Company Number: US-PFIZER INC-202400041197

PATIENT
  Age: 65 Year
  Sex: Female

DRUGS (3)
  1. ENBREL [Suspect]
     Active Substance: ETANERCEPT
     Indication: Polyarthritis
     Dosage: UNK
     Route: 065
     Dates: start: 201806
  2. ENBREL [Suspect]
     Active Substance: ETANERCEPT
     Indication: Rheumatoid arthritis
  3. XELJANZ XR [Suspect]
     Active Substance: TOFACITINIB CITRATE
     Indication: Arthritis
     Dosage: 11 MILLIGRAM, QD
     Route: 048
     Dates: start: 202203

REACTIONS (8)
  - Arthralgia [Unknown]
  - Dry eye [Unknown]
  - Low density lipoprotein increased [Unknown]
  - Pain [Unknown]
  - Tendonitis [Unknown]
  - Chest pain [Unknown]
  - Enthesopathy [Unknown]
  - Epicondylitis [Unknown]

NARRATIVE: CASE EVENT DATE: 20180101
